FAERS Safety Report 18301459 (Version 1)
Quarter: 2020Q3

REPORT INFORMATION
  Report Type: Spontaneous
  Country: US (occurrence: US)
  Receive Date: 20200923
  Receipt Date: 20200923
  Transmission Date: 20201103
  Serious: No
  Sender: FDA-Public Use
  Company Number: US-RECKITT BENCKISER HEALTHCARE INT LIMITED-RB-93480-2019

PATIENT
  Age: 52 Year
  Sex: Female

DRUGS (2)
  1. MUCINEX [Suspect]
     Active Substance: GUAIFENESIN
     Indication: HYPERSENSITIVITY
     Dosage: TOOK 1200 MILLIGRAM AT AN UNKNOWN FREQUENCY
     Route: 065
  2. MUCINEX MAXIMUM STRENGTH [Suspect]
     Active Substance: GUAIFENESIN
     Indication: HYPERSENSITIVITY
     Dosage: 2400 MILLIGRAM, SINGLE
     Route: 065
     Dates: start: 201911

REACTIONS (2)
  - Product use in unapproved indication [Unknown]
  - Accidental overdose [Unknown]
